FAERS Safety Report 17881368 (Version 1)
Quarter: 2020Q2

REPORT INFORMATION
  Report Type: Report from Study
  Country: US (occurrence: US)
  Receive Date: 20200610
  Receipt Date: 20200610
  Transmission Date: 20200714
  Serious: Yes (Other)
  Sender: FDA-Public Use
  Company Number: US-PFIZER INC-2020223609

PATIENT

DRUGS (2)
  1. MILRINONE [Suspect]
     Active Substance: MILRINONE
     Indication: SUBARACHNOID HAEMORRHAGE
     Dosage: 0.87 MG, 3X/DAY (0.87 MG IN 2ML STERILE SALINE EVERY 8 HOURS)
     Route: 042
  2. MILRINONE [Suspect]
     Active Substance: MILRINONE
     Indication: VASOSPASM

REACTIONS (1)
  - CNS ventriculitis [Unknown]
